FAERS Safety Report 22102279 (Version 1)
Quarter: 2023Q1

REPORT INFORMATION
  Report Type: Spontaneous
  Country: FR (occurrence: FR)
  Receive Date: 20230316
  Receipt Date: 20230316
  Transmission Date: 20230418
  Serious: Yes (Other)
  Sender: FDA-Public Use
  Company Number: None

PATIENT
  Age: 50 Year
  Sex: Male

DRUGS (2)
  1. VIAGRA [Suspect]
     Active Substance: SILDENAFIL CITRATE
     Indication: Product used for unknown indication
     Dosage: UNK
     Route: 065
  2. COCAINE [Suspect]
     Active Substance: COCAINE
     Indication: Product used for unknown indication
     Dosage: UNK
     Route: 065

REACTIONS (12)
  - Tetany [Unknown]
  - Incoherent [Unknown]
  - Haematemesis [Unknown]
  - Myoclonus [Unknown]
  - Agitation [Unknown]
  - Somnolence [Unknown]
  - Tachycardia [Unknown]
  - Vomiting [Unknown]
  - Nausea [Unknown]
  - Drug abuse [Unknown]
  - Hypertension [Unknown]
  - Tachypnoea [Unknown]

NARRATIVE: CASE EVENT DATE: 20220404
